FAERS Safety Report 19386073 (Version 1)
Quarter: 2021Q2

REPORT INFORMATION
  Report Type: Report from Study
  Country: CO (occurrence: CO)
  Receive Date: 20210608
  Receipt Date: 20210608
  Transmission Date: 20210717
  Serious: Yes (Other)
  Sender: FDA-Public Use
  Company Number: NVSC2021CO105770

PATIENT
  Sex: Male
  Weight: 25 kg

DRUGS (2)
  1. OMNITROPE [Suspect]
     Active Substance: SOMATROPIN
     Indication: GROWTH RETARDATION
     Dosage: 0.9 MG, QD (2 YEARS AGO REMEMBER)
     Route: 058
  2. OMNITROPE [Suspect]
     Active Substance: SOMATROPIN
     Indication: GROWTH HORMONE DEFICIENCY
     Dosage: 0.9 MG, QD
     Route: 058
     Dates: start: 20200917

REACTIONS (6)
  - Constipation [Unknown]
  - Hypospadias [Unknown]
  - Headache [Not Recovered/Not Resolved]
  - Infertility male [Unknown]
  - Stress [Unknown]
  - Back pain [Unknown]
